FAERS Safety Report 7525514-7 (Version None)
Quarter: 2011Q2

REPORT INFORMATION
  Report Type: 
  Country: None (occurrence: None)
  Receive Date: 20110606
  Receipt Date: 20110525
  Transmission Date: 20111010
  Serious: Yes (Hospitalization, Other)
  Sender: FDA-Public Use
  Company Number: US-BAYER-201027076NA

PATIENT
  Age: 14 Year
  Sex: Female
  Weight: 86.168 kg

DRUGS (4)
  1. YAZ [Suspect]
     Dosage: UNK
     Dates: start: 20080101, end: 20090101
  2. YAZ [Suspect]
     Dosage: UNK
     Route: 048
     Dates: start: 20060801, end: 20061101
  3. YASMIN [Suspect]
     Indication: MENSTRUAL CYCLE MANAGEMENT
     Dosage: UNK
     Route: 048
     Dates: start: 20060601, end: 20080101
  4. YASMIN [Suspect]
     Indication: ORAL CONTRACEPTION

REACTIONS (6)
  - MIXED LIVER INJURY [None]
  - CHOLELITHIASIS [None]
  - CHOLECYSTITIS ACUTE [None]
  - ARTERIAL INJURY [None]
  - ABDOMINAL PAIN UPPER [None]
  - GALLBLADDER INJURY [None]
